FAERS Safety Report 8853582 (Version 2)
Quarter: 2012Q4

REPORT INFORMATION
  Report Type: 
  Country: US (occurrence: US)
  Receive Date: 20121023
  Receipt Date: 20121030
  Transmission Date: 20130627
  Serious: No
  Sender: FDA-Public Use
  Company Number: US-BIOGENIDEC-2012BI046414

PATIENT
  Age: 53 Year
  Sex: Female

DRUGS (4)
  1. AVONEX [Suspect]
     Indication: MULTIPLE SCLEROSIS
     Route: 030
     Dates: start: 20120914
  2. LEVOXYL [Concomitant]
     Indication: THYROID DISORDER
  3. FUROSEMIDE [Concomitant]
  4. FERROUS [Concomitant]

REACTIONS (12)
  - Erythema [Recovered/Resolved]
  - Peroneal nerve palsy [Unknown]
  - Facial pain [Unknown]
  - Depression [Not Recovered/Not Resolved]
  - Feeling hot [Recovered/Resolved]
  - Headache [Unknown]
  - Hot flush [Unknown]
  - Insomnia [Unknown]
  - Flushing [Unknown]
  - Drug ineffective [Unknown]
  - Gait disturbance [Unknown]
  - Pain in extremity [Unknown]
